FAERS Safety Report 24328857 (Version 1)
Quarter: 2024Q3

REPORT INFORMATION
  Report Type: Spontaneous
  Country: US (occurrence: US)
  Receive Date: 20240917
  Receipt Date: 20240917
  Transmission Date: 20241017
  Serious: Yes (Other)
  Sender: VIIV
  Company Number: US-ViiV Healthcare Limited-US2024GSK111632

PATIENT

DRUGS (2)
  1. CABOTEGRAVIR [Suspect]
     Active Substance: CABOTEGRAVIR
     Indication: Antiviral prophylaxis
     Dosage: 600 MG
     Route: 030
  2. EMTRICITABINE\TENOFOVIR [Concomitant]
     Active Substance: EMTRICITABINE\TENOFOVIR
     Indication: Antiviral prophylaxis
     Dosage: UNK, QD
     Route: 048

REACTIONS (7)
  - HIV infection [Unknown]
  - Pathogen resistance [Unknown]
  - Viral mutation identified [Unknown]
  - Pyrexia [Unknown]
  - Chills [Unknown]
  - Headache [Unknown]
  - Drug ineffective [Unknown]
